FAERS Safety Report 23637230 (Version 1)
Quarter: 2024Q1

REPORT INFORMATION
  Report Type: Spontaneous
  Country: US (occurrence: US)
  Receive Date: 20240315
  Receipt Date: 20240315
  Transmission Date: 20240409
  Serious: No
  Sender: FDA-Public Use
  Company Number: US-ARBOR PHARMACEUTICALS, LLC-US-2023ARB004717

PATIENT
  Age: 13 Year
  Sex: Female

DRUGS (1)
  1. SKLICE [Suspect]
     Active Substance: IVERMECTIN
     Indication: Product used for unknown indication
     Dosage: UNK
     Route: 061

REACTIONS (2)
  - Hair texture abnormal [Unknown]
  - Dry skin [Unknown]
